FAERS Safety Report 6516095-5 (Version None)
Quarter: 2009Q4

REPORT INFORMATION
  Report Type: 
  Country: None (occurrence: None)
  Receive Date: 20091223
  Receipt Date: 20091216
  Transmission Date: 20100525
  Serious: Yes (Hospitalization)
  Sender: FDA-Public Use
  Company Number: JP-BAYER-200914836BYL

PATIENT
  Age: 63 Year
  Sex: Male
  Weight: 61 kg

DRUGS (12)
  1. NEXAVAR [Suspect]
     Indication: RENAL CELL CARCINOMA
     Dosage: UNIT DOSE: 200 MG
     Route: 048
     Dates: start: 20080410, end: 20080514
  2. NEXAVAR [Suspect]
     Dosage: UNIT DOSE: 200 MG
     Route: 048
     Dates: start: 20080515, end: 20080803
  3. NEXAVAR [Suspect]
     Dosage: UNIT DOSE: 200 MG
     Route: 048
     Dates: start: 20090620, end: 20090712
  4. NEXAVAR [Suspect]
     Dosage: UNIT DOSE: 200 MG
     Route: 048
     Dates: start: 20080804, end: 20090604
  5. ZYLORIC [Concomitant]
     Route: 048
     Dates: start: 20080410, end: 20080515
  6. ZYLORIC [Concomitant]
     Route: 048
     Dates: start: 20080623
  7. IMUNACE [Concomitant]
     Route: 042
     Dates: start: 20080727, end: 20080822
  8. IMUNACE [Concomitant]
     Route: 042
     Dates: start: 20081128, end: 20081219
  9. IMUNACE [Concomitant]
     Route: 042
     Dates: start: 20090305, end: 20090403
  10. SOLU-CORTEF [Concomitant]
     Route: 042
     Dates: start: 20081128, end: 20081219
  11. OLMETEC [Concomitant]
     Route: 048
     Dates: start: 20080623
  12. ATELEC [Concomitant]
     Route: 048
     Dates: start: 20080623

REACTIONS (3)
  - CEREBRAL INFARCTION [None]
  - DIARRHOEA [None]
  - HYPERTENSION [None]
